FAERS Safety Report 13445751 (Version 2)
Quarter: 2017Q2

REPORT INFORMATION
  Report Type: Spontaneous
  Country: GB (occurrence: GB)
  Receive Date: 20170416
  Receipt Date: 20170503
  Transmission Date: 20170830
  Serious: Yes (Hospitalization)
  Sender: FDA-Public Use
  Company Number: GB-UCBSA-2017014361

PATIENT
  Sex: Male

DRUGS (1)
  1. KEPPRA [Suspect]
     Active Substance: LEVETIRACETAM
     Indication: PRODUCT USED FOR UNKNOWN INDICATION
     Dosage: 1.5G OF KEPPRA 100 MG/ML CONCENTRATE FOR SOLUTION FOR INFUSION IN EACH ARM VIA SYRINGE DRIVER

REACTIONS (1)
  - Hospitalisation [Unknown]
